FAERS Safety Report 10871519 (Version 1)
Quarter: 2015Q1

REPORT INFORMATION
  Report Type: Spontaneous
  Country: US (occurrence: US)
  Receive Date: 20150226
  Receipt Date: 20150226
  Transmission Date: 20150721
  Serious: No
  Sender: FDA-Public Use
  Company Number: US-MYLANLABS-2014S1007075

PATIENT
  Sex: Female

DRUGS (2)
  1. METFORMIN HYDROCHLORIDE TABLETS USP [Suspect]
     Active Substance: METFORMIN HYDROCHLORIDE
     Indication: TYPE 2 DIABETES MELLITUS
     Dosage: 500 MG,BID
     Route: 048
     Dates: start: 2006
  2. HERBAL [Concomitant]
     Indication: DEPRESSION
     Dosage: UNK

REACTIONS (5)
  - Breast pain [Recovered/Resolved]
  - Breast disorder [Recovered/Resolved]
  - Drug effect decreased [Not Recovered/Not Resolved]
  - Glycosylated haemoglobin increased [Not Recovered/Not Resolved]
  - Weight decreased [Recovered/Resolved]

NARRATIVE: CASE EVENT DATE: 2012
